FAERS Safety Report 5307295-0 (Version None)
Quarter: 2007Q2

REPORT INFORMATION
  Report Type: 
  Country: None (occurrence: None)
  Receive Date: 20070425
  Receipt Date: 20070417
  Transmission Date: 20071010
  Serious: Yes (Hospitalization)
  Sender: FDA-Public Use
  Company Number: JP-ABBOTT-07P-087-0365382-00

PATIENT
  Age: 11 Year
  Sex: Female

DRUGS (3)
  1. CYCLOSPORINE [Suspect]
     Indication: FOCAL GLOMERULOSCLEROSIS
  2. METHYLPREDNISOLONE 16MG TAB [Concomitant]
     Indication: FOCAL GLOMERULOSCLEROSIS
     Dosage: PULSE THERAPY
  3. PREDNISOLONE [Concomitant]
     Indication: FOCAL GLOMERULOSCLEROSIS
     Route: 048

REACTIONS (3)
  - DRUG RESISTANCE [None]
  - NEPHROPATHY TOXIC [None]
  - OSTEOPOROSIS [None]
